FAERS Safety Report 8222758-6 (Version None)
Quarter: 2012Q1

REPORT INFORMATION
  Report Type: 
  Country: None (occurrence: None)
  Receive Date: 20120320
  Receipt Date: 20120313
  Transmission Date: 20120608
  Serious: Yes (Other)
  Sender: FDA-Public Use
  Company Number: US-FRI-1000028095

PATIENT
  Age: 62 Year
  Sex: Female

DRUGS (8)
  1. CELEXA [Suspect]
     Dosage: 20 MG
     Dates: start: 20110701
  2. CELEXA [Suspect]
     Dosage: 20 MG BID
  3. COPD MEDICATIONS (NOS) [Concomitant]
     Indication: CHRONIC OBSTRUCTIVE PULMONARY DISEASE
  4. THYROID MEDICATION (NOS) [Concomitant]
  5. PREDNISONE TAB [Suspect]
     Indication: CHRONIC OBSTRUCTIVE PULMONARY DISEASE
  6. ARTHRITIS MEDICATION (NOS) [Suspect]
     Indication: ARTHRITIS
     Dates: end: 20120309
  7. PRILOSEC [Concomitant]
     Indication: HIATUS HERNIA
  8. XANAX [Concomitant]
     Indication: ANXIETY

REACTIONS (3)
  - HAEMORRHAGE SUBCUTANEOUS [None]
  - NERVOUSNESS [None]
  - DYSPNOEA [None]
